FAERS Safety Report 5344133-4 (Version None)
Quarter: 2007Q2

REPORT INFORMATION
  Report Type: 
  Country: None (occurrence: None)
  Receive Date: 20070531
  Receipt Date: 20070531
  Transmission Date: 20071010
  Serious: Yes (Life-Threatening, Hospitalization, Disabling)
  Sender: FDA-Public Use
  Company Number: None

PATIENT
  Age: 75 Year
  Sex: Male
  Weight: 73.9363 kg

DRUGS (1)
  1. AVANDIA [Suspect]
     Indication: DIABETES MELLITUS
     Dosage: ONCE DAILY PO
     Route: 048
     Dates: start: 20060615, end: 20070417

REACTIONS (2)
  - ATRIAL FIBRILLATION [None]
  - RENAL FAILURE [None]
